FAERS Safety Report 8211407-9 (Version None)
Quarter: 2012Q1

REPORT INFORMATION
  Report Type: 
  Country: None (occurrence: None)
  Receive Date: 20120315
  Receipt Date: 20120305
  Transmission Date: 20120608
  Serious: Yes (Death, Other)
  Sender: FDA-Public Use
  Company Number: US-PFIZER INC-2012066335

PATIENT
  Age: 67 Year
  Sex: Male
  Weight: 117.46 kg

DRUGS (5)
  1. MORPHINE SULFATE [Suspect]
  2. MORPHINE SULFATE [Suspect]
     Indication: ARTHRALGIA
     Dosage: 60 MG, 2X/DAY
     Route: 048
     Dates: start: 20100301
  3. MORPHINE SULFATE [Suspect]
     Indication: ARTHRITIS
     Dosage: 60 MG, 1X/DAY
  4. MORPHINE [Concomitant]
     Indication: BREAKTHROUGH PAIN
     Dosage: 15 MG, UNK
     Dates: start: 20100301
  5. AMLODIPINE BESYLATE AND BENAZEPRIL HCL [Concomitant]

REACTIONS (4)
  - DYSPNOEA [None]
  - CARDIAC ARREST [None]
  - CHEST DISCOMFORT [None]
  - ASTHENIA [None]
